FAERS Safety Report 14996168 (Version 1)
Quarter: 2018Q2

REPORT INFORMATION
  Report Type: Report from Study
  Country: US (occurrence: US)
  Receive Date: 20180611
  Receipt Date: 20180611
  Transmission Date: 20180711
  Serious: Yes (Hospitalization, Other)
  Sender: FDA-Public Use
  Company Number: US-MYLANLABS-2018M1039059

PATIENT

DRUGS (4)
  1. FLUOROURACIL. [Suspect]
     Active Substance: FLUOROURACIL
     Indication: HEAD AND NECK CANCER
     Dosage: 750 MG/M2, QD, RECEIVED ON DAY 1 TO 4.
     Route: 065
  2. CISPLATIN. [Suspect]
     Active Substance: CISPLATIN
     Indication: HEAD AND NECK CANCER
     Dosage: 75 MG/M2, QD, RECEIVED ON DAY 1
     Route: 065
  3. DOCETAXEL. [Suspect]
     Active Substance: DOCETAXEL
     Indication: HEAD AND NECK CANCER
     Dosage: 75 MG/M2, QD, RECEIVED ON DAY 1
     Route: 065
  4. ERLOTINIB [Suspect]
     Active Substance: ERLOTINIB
     Indication: HEAD AND NECK CANCER
     Dosage: 150 MG, QD, RECEIVED ON DAY 1.
     Route: 048

REACTIONS (2)
  - Acute kidney injury [Unknown]
  - Diarrhoea [Unknown]
